FAERS Safety Report 4336788-8 (Version None)
Quarter: 2004Q2

REPORT INFORMATION
  Report Type: 
  Country: None (occurrence: None)
  Receive Date: 20040407
  Receipt Date: 20040329
  Transmission Date: 20050107
  Serious: Yes (Hospitalization)
  Sender: FDA-Public Use
  Company Number: US-JNJFOC-20040306597

PATIENT
  Age: 69 Year
  Sex: Male

DRUGS (7)
  1. RISPERDAL [Suspect]
     Indication: SCHIZOAFFECTIVE DISORDER
     Dosage: 1.5 MG, 2 IN 1 DAY, ORAL
     Route: 048
     Dates: start: 20040101
  2. SYNTHROID [Concomitant]
  3. NEURONTIN [Concomitant]
  4. ISONIAZID [Concomitant]
  5. VITAMIN B6 [Concomitant]
  6. MINOXIDIL [Concomitant]
  7. HYDROCHLOROTHYAZIDE (HYDROCHLOROTHIAZIDE) [Concomitant]

REACTIONS (7)
  - BLOOD SODIUM DECREASED [None]
  - CULTURE URINE POSITIVE [None]
  - HYPOTHERMIA [None]
  - KLEBSIELLA INFECTION [None]
  - PROTEUS INFECTION [None]
  - RESPIRATORY FAILURE [None]
  - SINUS BRADYCARDIA [None]
